FAERS Safety Report 8614766-8 (Version None)
Quarter: 2012Q3

REPORT INFORMATION
  Report Type: 
  Country: None (occurrence: None)
  Receive Date: 20120823
  Receipt Date: 20120817
  Transmission Date: 20120928
  Serious: Yes (Hospitalization, Other)
  Sender: FDA-Public Use
  Company Number: US-PFIZER INC-2012202849

PATIENT
  Age: 62 Year
  Sex: Male
  Weight: 104.31 kg

DRUGS (5)
  1. LIPITOR [Concomitant]
     Dosage: UNK
  2. NORVASC [Concomitant]
     Dosage: UNK
  3. PLAVIX [Concomitant]
     Dosage: UNK
  4. ZOLOFT [Concomitant]
     Dosage: UNK
  5. LYRICA [Suspect]
     Indication: FIBROMYALGIA
     Dosage: 150MG ONCE IN MORNING AND TWO 150MG AT BED TIME, UNK
     Route: 048

REACTIONS (14)
  - NEUROPATHY PERIPHERAL [None]
  - MEMORY IMPAIRMENT [None]
  - CEREBROVASCULAR ACCIDENT [None]
  - POOR PERIPHERAL CIRCULATION [None]
  - GAIT DISTURBANCE [None]
  - CONTUSION [None]
  - CAROTID ARTERY OCCLUSION [None]
  - BLINDNESS TRANSIENT [None]
  - FIBROMYALGIA [None]
  - DIABETIC NEUROPATHY [None]
  - ATRIOVENTRICULAR BLOCK [None]
  - PAIN IN EXTREMITY [None]
  - NEURALGIA [None]
  - AMNESIA [None]
